FAERS Safety Report 7443849-3 (Version None)
Quarter: 2011Q2

REPORT INFORMATION
  Report Type: 
  Country: None (occurrence: None)
  Receive Date: 20110428
  Receipt Date: 20110423
  Transmission Date: 20111010
  Serious: Yes (Disabling, Other)
  Sender: FDA-Public Use
  Company Number: CZ-BAYER-2011-035330

PATIENT
  Age: 64 Year
  Sex: Male

DRUGS (1)
  1. SORAFENIB (RAF KINASE INHIBITOR) [Suspect]
     Indication: RENAL CANCER
     Dosage: UNK
     Dates: start: 20101122

REACTIONS (3)
  - FATIGUE [None]
  - DEEP VEIN THROMBOSIS [None]
  - ABASIA [None]
